FAERS Safety Report 6307400-3 (Version None)
Quarter: 2009Q3

REPORT INFORMATION
  Report Type: 
  Country: None (occurrence: None)
  Receive Date: 20090813
  Receipt Date: 20070515
  Transmission Date: 20100115
  Serious: Yes (Other)
  Sender: FDA-Public Use
  Company Number: US-ASTRAZENECA-2006UW11267

PATIENT
  Age: 525 Month
  Sex: Female
  Weight: 101.2 kg

DRUGS (18)
  1. SEROQUEL [Suspect]
     Indication: BIPOLAR DISORDER
     Dosage: 25 MG - 400 MG
     Route: 048
     Dates: start: 20031023
  2. SEROQUEL [Suspect]
     Dosage: 25-500 MG
     Route: 048
     Dates: start: 20031113
  3. GEODON [Concomitant]
  4. KLONOPIN [Concomitant]
  5. DICYCLOMINE [Concomitant]
     Route: 048
     Dates: start: 20030818
  6. CYMBALTA [Concomitant]
     Indication: DEPRESSION
     Route: 048
     Dates: start: 20050311
  7. PRILOSEC [Concomitant]
     Indication: ABDOMINAL DISCOMFORT
     Dosage: 40-640 MG
     Route: 048
     Dates: start: 20050207
  8. TEGRETOL [Concomitant]
     Dates: start: 20030818
  9. TYLENOL W/ CODEINE [Concomitant]
     Indication: NECK PAIN
     Dosage: ONE TABLET FOUR TIMES A DAY
     Route: 048
     Dates: start: 20060301
  10. TYLENOL (CAPLET) [Concomitant]
     Indication: MUSCULOSKELETAL CHEST PAIN
     Dates: start: 20030926
  11. TYLENOL (CAPLET) [Concomitant]
     Indication: PYREXIA
     Dates: start: 20030926
  12. GABAPENTIN [Concomitant]
     Dosage: 600-1800 MG
     Dates: start: 20050207
  13. ELAVIL [Concomitant]
     Indication: DEPRESSION
     Dosage: 10-50 MG
     Dates: start: 20060301
  14. TRICOR [Concomitant]
     Indication: BLOOD CHOLESTEROL DECREASED
     Dates: start: 20060301
  15. FLEXERIL [Concomitant]
     Indication: MUSCLE SPASMS
     Route: 048
     Dates: start: 20040209
  16. GEMFIBROZIL [Concomitant]
     Dates: start: 20050207
  17. LISINOPRIL [Concomitant]
     Route: 048
     Dates: start: 20061113
  18. AMBIEN [Concomitant]
     Indication: INSOMNIA
     Dosage: 10-20 MG
     Route: 048
     Dates: start: 20050311

REACTIONS (4)
  - CARDIAC FAILURE CONGESTIVE [None]
  - DIABETES MELLITUS [None]
  - DIABETIC EYE DISEASE [None]
  - TYPE 2 DIABETES MELLITUS [None]
